FAERS Safety Report 16724328 (Version 1)
Quarter: 2019Q3

REPORT INFORMATION
  Report Type: Spontaneous
  Country: US (occurrence: US)
  Receive Date: 20190821
  Receipt Date: 20190821
  Transmission Date: 20191005
  Serious: No
  Sender: FDA-Public Use
  Company Number: US-MYLANLABS-2019M1070384

PATIENT
  Sex: Male
  Weight: 84.36 kg

DRUGS (2)
  1. PREMARIN [Concomitant]
     Active Substance: ESTROGENS, CONJUGATED
     Dosage: 3.75 MILLIGRAM, QD
  2. SPIRONOLACTONE TABLETS, USP [Suspect]
     Active Substance: SPIRONOLACTONE
     Indication: PRODUCT USED FOR UNKNOWN INDICATION
     Dosage: 400 MILLIGRAM

REACTIONS (3)
  - Anger [Unknown]
  - Blood oestrogen increased [Unknown]
  - Blood testosterone increased [Not Recovered/Not Resolved]
